FAERS Safety Report 7363861-2 (Version None)
Quarter: 2011Q1

REPORT INFORMATION
  Report Type: 
  Country: None (occurrence: None)
  Receive Date: 20110321
  Receipt Date: 20110314
  Transmission Date: 20110831
  Serious: Yes (Other)
  Sender: FDA-Public Use
  Company Number: IN-PFIZER INC-2011055849

PATIENT

DRUGS (2)
  1. DAPSONE [Suspect]
  2. METRONIDAZOLE [Suspect]

REACTIONS (1)
  - SKIN LESION [None]
